FAERS Safety Report 11709231 (Version 1)
Quarter: 2015Q4

REPORT INFORMATION
  Report Type: Spontaneous
  Country: US (occurrence: US)
  Receive Date: 20151104
  Receipt Date: 20151104
  Transmission Date: 20160304
  Serious: No
  Sender: FDA-Public Use
  Company Number: US-ELI_LILLY_AND_COMPANY-US201101000756

PATIENT
  Age: 63 Year
  Sex: Female

DRUGS (3)
  1. FORTEO [Suspect]
     Active Substance: TERIPARATIDE
     Indication: OSTEOPOROSIS
     Dosage: 20 UG, DAILY (1/D)
     Route: 058
  2. FORTEO [Suspect]
     Active Substance: TERIPARATIDE
     Dosage: 20 UG, DAILY (1/D)
     Route: 058
  3. FORTEO [Suspect]
     Active Substance: TERIPARATIDE
     Dosage: 20 UG, DAILY (1/D)
     Route: 058

REACTIONS (16)
  - Mastication disorder [Unknown]
  - Pain [Unknown]
  - Ligament sprain [Unknown]
  - Fall [Unknown]
  - Fall [Unknown]
  - Gingival swelling [Unknown]
  - Muscle spasms [Unknown]
  - Joint injury [Unknown]
  - Tongue biting [Unknown]
  - Soft tissue injury [Unknown]
  - Injection site pain [Unknown]
  - Contusion [Unknown]
  - Swollen tongue [Recovering/Resolving]
  - Dysphagia [Unknown]
  - Speech disorder [Not Recovered/Not Resolved]
  - Eating disorder [Unknown]

NARRATIVE: CASE EVENT DATE: 201012
